FAERS Safety Report 17984444 (Version 7)
Quarter: 2020Q4

REPORT INFORMATION
  Report Type: Report from Study
  Country: US (occurrence: US)
  Receive Date: 20200706
  Receipt Date: 20201111
  Transmission Date: 20210113
  Serious: Yes (Hospitalization)
  Sender: FDA-Public Use
  Company Number: NVSC2020US189958

PATIENT
  Age: 76 Year
  Sex: Male

DRUGS (2)
  1. LASIX [Concomitant]
     Active Substance: FUROSEMIDE
     Indication: PRODUCT USED FOR UNKNOWN INDICATION
     Dosage: UNK
     Route: 065
  2. ENTRESTO [Suspect]
     Active Substance: SACUBITRIL\VALSARTAN
     Indication: CARDIAC FAILURE
     Dosage: 1 DF (49/51MG), BID
     Route: 048
     Dates: start: 202002

REACTIONS (6)
  - Blood glucose increased [Unknown]
  - Feeling jittery [Not Recovered/Not Resolved]
  - Dyspnoea [Unknown]
  - Constipation [Recovered/Resolved]
  - Ejection fraction abnormal [Unknown]
  - Atrial flutter [Unknown]

NARRATIVE: CASE EVENT DATE: 202003
